FAERS Safety Report 7550221-4 (Version None)
Quarter: 2011Q2

REPORT INFORMATION
  Report Type: 
  Country: None (occurrence: None)
  Receive Date: 20110615
  Receipt Date: 20110603
  Transmission Date: 20111010
  Serious: Yes (Hospitalization, Other)
  Sender: FDA-Public Use
  Company Number: DE-UCBSA-032437

PATIENT
  Age: 4 Year
  Sex: Male

DRUGS (6)
  1. LEVETIRACETAM [Concomitant]
  2. LACOSAMIDE [Suspect]
     Indication: EPILEPSY
     Route: 048
  3. LACOSAMIDE [Suspect]
  4. LACOSAMIDE [Suspect]
  5. LACOSAMIDE [Suspect]
     Route: 048
  6. RUFINAMIDE [Concomitant]

REACTIONS (4)
  - POLLAKIURIA [None]
  - STATUS EPILEPTICUS [None]
  - SOMNOLENCE [None]
  - CONVULSION [None]
